FAERS Safety Report 7079655-1 (Version None)
Quarter: 2010Q4

REPORT INFORMATION
  Report Type: 
  Country: None (occurrence: None)
  Receive Date: 20101102
  Receipt Date: 20101020
  Transmission Date: 20110411
  Serious: Yes (Disabling)
  Sender: FDA-Public Use
  Company Number: PHHY2010JP56407

PATIENT
  Sex: Male

DRUGS (18)
  1. LEPONEX / CLOZARIL (CLOZAPINE) LEX+TAB [Suspect]
     Indication: SCHIZOPHRENIA, UNDIFFERENTIATED TYPE
     Dosage: 12.5 MG
     Route: 048
     Dates: start: 20100427, end: 20100427
  2. LEPONEX / CLOZARIL (CLOZAPINE) LEX+TAB [Suspect]
     Dosage: 25 MG
     Route: 048
     Dates: start: 20100428, end: 20100429
  3. LEPONEX / CLOZARIL (CLOZAPINE) LEX+TAB [Suspect]
     Dosage: 50 MG
     Route: 048
     Dates: start: 20100430, end: 20100503
  4. LEPONEX / CLOZARIL (CLOZAPINE) LEX+TAB [Suspect]
     Dosage: 75 MG
     Route: 048
     Dates: start: 20100504, end: 20100505
  5. LEPONEX / CLOZARIL (CLOZAPINE) LEX+TAB [Suspect]
     Dosage: 100 MG
     Route: 048
     Dates: start: 20100506, end: 20100507
  6. LEPONEX / CLOZARIL (CLOZAPINE) LEX+TAB [Suspect]
     Dosage: 125 MG
     Route: 048
     Dates: start: 20100508, end: 20100510
  7. LEPONEX / CLOZARIL (CLOZAPINE) LEX+TAB [Suspect]
     Dosage: 150 MG
     Route: 048
     Dates: start: 20100511, end: 20100513
  8. LEPONEX / CLOZARIL (CLOZAPINE) LEX+TAB [Suspect]
     Dosage: 175 MG
     Route: 048
     Dates: start: 20100514, end: 20100516
  9. LEPONEX / CLOZARIL (CLOZAPINE) LEX+TAB [Suspect]
     Dosage: 200 MG
     Route: 048
     Dates: start: 20100517, end: 20100520
  10. LEPONEX / CLOZARIL (CLOZAPINE) LEX+TAB [Suspect]
     Dosage: 250 MG
     Route: 048
     Dates: start: 20100521, end: 20100527
  11. LEPONEX / CLOZARIL (CLOZAPINE) LEX+TAB [Suspect]
     Dosage: 300 MG
     Route: 048
     Dates: start: 20100528
  12. HALOPERIDOL [Concomitant]
     Route: 048
  13. RISPERIDONE [Concomitant]
     Route: 048
  14. OLANZAPINE [Concomitant]
     Route: 048
  15. ARIPIPRAZOLE [Concomitant]
     Route: 048
  16. BLONANSERIN [Concomitant]
     Route: 048
  17. TRIAZOLAM [Concomitant]
     Dosage: UNK
     Route: 048
     Dates: start: 20100825
  18. FLUNITRAZEPAM [Concomitant]
     Dosage: 2MG
     Dates: start: 20100825

REACTIONS (4)
  - EOSINOPHIL COUNT INCREASED [None]
  - GLYCOSYLATED HAEMOGLOBIN INCREASED [None]
  - HYPERGLYCAEMIA [None]
  - WHITE BLOOD CELL COUNT INCREASED [None]
